FAERS Safety Report 21039564 (Version 1)
Quarter: 2022Q3

REPORT INFORMATION
  Report Type: Spontaneous
  Country: US (occurrence: US)
  Receive Date: 20220704
  Receipt Date: 20220704
  Transmission Date: 20221027
  Serious: No
  Sender: FDA-Public Use
  Company Number: US-PFIZER INC-202101113950

PATIENT
  Age: 66 Year
  Sex: Female
  Weight: 69.85 kg

DRUGS (1)
  1. PREMARIN [Suspect]
     Active Substance: ESTROGENS, CONJUGATED
     Indication: Vulvovaginal dryness
     Dosage: THREE TIMES A WEEK

REACTIONS (3)
  - Off label use [Unknown]
  - Drug dispensed to wrong patient [Unknown]
  - Memory impairment [Unknown]
